FAERS Safety Report 16399029 (Version 2)
Quarter: 2019Q4

REPORT INFORMATION
  Report Type: Spontaneous
  Country: IT (occurrence: IT)
  Receive Date: 20190606
  Receipt Date: 20191128
  Transmission Date: 20200122
  Serious: Yes (Other)
  Sender: FDA-Public Use
  Company Number: IT-SAMSUNG BIOEPIS-SB-2019-13489

PATIENT
  Age: 56 Year
  Sex: Male

DRUGS (1)
  1. BENEPALI [Suspect]
     Active Substance: ETANERCEPT
     Indication: PSORIATIC ARTHROPATHY
     Route: 058
     Dates: start: 20180301, end: 20180807

REACTIONS (2)
  - Drug ineffective [Not Recovered/Not Resolved]
  - Glaucoma [Not Recovered/Not Resolved]

NARRATIVE: CASE EVENT DATE: 20180807
